FAERS Safety Report 6290554-5 (Version None)
Quarter: 2009Q3

REPORT INFORMATION
  Report Type: 
  Country: None (occurrence: None)
  Receive Date: 20090730
  Receipt Date: 20090720
  Transmission Date: 20100115
  Serious: Yes (Other)
  Sender: FDA-Public Use
  Company Number: DE-ROCHE-641076

PATIENT
  Age: 52 Year
  Sex: Male

DRUGS (2)
  1. MIRCERA [Suspect]
     Route: 065
     Dates: start: 20071001
  2. MIRCERA [Suspect]
     Dosage: INCREASED DOSE
     Route: 065
     Dates: start: 20090502, end: 20090615

REACTIONS (2)
  - HAEMOGLOBIN DECREASED [None]
  - MALIGNANT MELANOMA [None]
